FAERS Safety Report 12110744 (Version 2)
Quarter: 2016Q1

REPORT INFORMATION
  Report Type: Spontaneous
  Country: AT (occurrence: AT)
  Receive Date: 20160224
  Receipt Date: 20160308
  Transmission Date: 20160526
  Serious: Yes (Hospitalization)
  Sender: FDA-Public Use
  Company Number: AT-TEVA-637172ISR

PATIENT
  Age: 29 Year
  Sex: Male

DRUGS (3)
  1. TRAMADOL HYDROCHLORIDE. [Suspect]
     Active Substance: TRAMADOL HYDROCHLORIDE
     Dosage: 30 PIECES OF  50 MG
     Dates: start: 201303
  2. DIAZEPAM. [Suspect]
     Active Substance: DIAZEPAM
     Dates: start: 201304
  3. PREGABALIN. [Suspect]
     Active Substance: PREGABALIN
     Dosage: 20 PIECES OF 150 MG
     Dates: start: 201303

REACTIONS (2)
  - Toxicity to various agents [Unknown]
  - Overdose [Unknown]

NARRATIVE: CASE EVENT DATE: 2013
